FAERS Safety Report 9328850 (Version 1)
Quarter: 2013Q2

REPORT INFORMATION
  Report Type: Spontaneous
  Country: US (occurrence: US)
  Receive Date: 20130604
  Receipt Date: 20130604
  Transmission Date: 20140414
  Serious: Yes (Other)
  Sender: FDA-Public Use
  Company Number: US-SANOFI-AVENTIS-2013SA018205

PATIENT
  Age: 76 Year
  Sex: Male

DRUGS (3)
  1. LANTUS SOLOSTAR [Suspect]
     Dosage: 16-22 UNITS DAILY
     Route: 058
     Dates: start: 2012
  2. SOLOSTAR [Suspect]
     Dates: start: 2012
  3. GLIPIZIDE [Suspect]
     Route: 065

REACTIONS (4)
  - Retinopathy [Unknown]
  - Hypoglycaemia [Recovered/Resolved]
  - Abnormal behaviour [Recovered/Resolved]
  - Blood glucose increased [Recovered/Resolved]
